FAERS Safety Report 14826775 (Version 1)
Quarter: 2018Q2

REPORT INFORMATION
  Report Type: Spontaneous
  Country: FR (occurrence: FR)
  Receive Date: 20180430
  Receipt Date: 20180430
  Transmission Date: 20180711
  Serious: Yes (Hospitalization, Other)
  Sender: FDA-Public Use
  Company Number: FR-AUROBINDO-AUR-APL-2018-021536

PATIENT
  Age: 19 Year
  Sex: Male

DRUGS (6)
  1. CEFTRIAXONE. [Suspect]
     Active Substance: CEFTRIAXONE
     Indication: TYPHOID FEVER
     Dosage: 4 GRAM DAILY;
     Route: 042
  2. AZITHROMYCIN ANHYDROUS. [Suspect]
     Active Substance: AZITHROMYCIN ANHYDROUS
     Indication: GASTROENTERITIS SALMONELLA
     Dosage: UNK
     Route: 065
  3. AMOXICILLIN. [Suspect]
     Active Substance: AMOXICILLIN
     Indication: GASTROENTERITIS SALMONELLA
     Dosage: UNK
     Route: 065
  4. OFLOXACIN 200MG [Suspect]
     Active Substance: OFLOXACIN
     Indication: GASTROENTERITIS SALMONELLA
     Dosage: 200 MILLIGRAM, TWO TIMES A DAY
     Route: 048
  5. TRIMETHOPRIM SULFAMETHOXAZOLE [Suspect]
     Active Substance: SULFAMETHOXAZOLE\TRIMETHOPRIM
     Indication: GASTROENTERITIS SALMONELLA
     Dosage: UNK
     Route: 065
  6. CEFTRIAXONE. [Suspect]
     Active Substance: CEFTRIAXONE
     Indication: GASTROENTERITIS SALMONELLA
     Dosage: 2 GRAM, ONCE A DAY
     Route: 042

REACTIONS (6)
  - Agitation [Recovered/Resolved]
  - Abnormal behaviour [Recovered/Resolved]
  - Confusional state [Recovered/Resolved]
  - Encephalitis [Recovered/Resolved]
  - Pyrexia [Recovered/Resolved]
  - Hoffmann^s sign [Recovered/Resolved]
